FAERS Safety Report 6782703-7 (Version None)
Quarter: 2010Q2

REPORT INFORMATION
  Report Type: 
  Country: None (occurrence: None)
  Receive Date: 20100621
  Receipt Date: 20100608
  Transmission Date: 20101027
  Serious: Yes (Other)
  Sender: FDA-Public Use
  Company Number: DZ-ELI_LILLY_AND_COMPANY-DZ201006004640

PATIENT
  Sex: Male
  Weight: 19 kg

DRUGS (1)
  1. ATOMOXETINE HCL [Suspect]
     Indication: ATTENTION DEFICIT/HYPERACTIVITY DISORDER
     Dosage: 10 MG, DAILY (1/D)
     Route: 048
     Dates: start: 20100113, end: 20100118

REACTIONS (8)
  - AGGRESSION [None]
  - CHAPPED LIPS [None]
  - DRY SKIN [None]
  - JAUNDICE [None]
  - POLYDIPSIA [None]
  - RASH [None]
  - TERMINAL INSOMNIA [None]
  - URINE COLOUR ABNORMAL [None]
